FAERS Safety Report 4504094-4 (Version None)
Quarter: 2004Q4

REPORT INFORMATION
  Report Type: 
  Country: None (occurrence: None)
  Receive Date: 20041118
  Receipt Date: 20041108
  Transmission Date: 20050328
  Serious: Yes (Other)
  Sender: FDA-Public Use
  Company Number: PHBS2004GB15313

PATIENT
  Sex: Female

DRUGS (3)
  1. PAMIDRONATE DISODIUM [Suspect]
     Indication: BREAST CANCER METASTATIC
     Dosage: 90 MG OVER 2 HOURS
     Route: 042
  2. IBANDRONATE SODIUM [Suspect]
     Dosage: 50 MG/D
     Route: 065
  3. CAPECITABINE [Concomitant]
     Route: 048

REACTIONS (4)
  - CHEST X-RAY ABNORMAL [None]
  - INFLUENZA LIKE ILLNESS [None]
  - LYMPHADENOPATHY [None]
  - MASS [None]
